FAERS Safety Report 8796639 (Version 1)
Quarter: 2012Q4

REPORT INFORMATION
  Report Type: 
  Country: LU (occurrence: LU)
  Receive Date: 20120919
  Receipt Date: 20120919
  Transmission Date: 20130627
  Serious: Yes (Hospitalization)
  Sender: FDA-Public Use
  Company Number: LU-B.I. PHARMACEUTICALS,INC./RIDGEFIELD-2012-BL-00503BL

PATIENT
  Sex: Female

DRUGS (1)
  1. PRADAXA [Suspect]
     Indication: ATRIAL FIBRILLATION

REACTIONS (1)
  - Cerebrovascular accident [Unknown]
